FAERS Safety Report 20592270 (Version 1)
Quarter: 2022Q1

REPORT INFORMATION
  Report Type: Spontaneous
  Country: US (occurrence: None)
  Receive Date: 20220314
  Receipt Date: 20220314
  Transmission Date: 20220423
  Serious: No
  Sender: FDA-Public Use
  Company Number: US-ROCHE-2859246

PATIENT
  Sex: Female

DRUGS (7)
  1. XOLAIR [Suspect]
     Active Substance: OMALIZUMAB
     Indication: Urticaria chronic
     Dosage: PFS 150 MG / ML
     Route: 058
     Dates: start: 20210517
  2. XOLAIR [Suspect]
     Active Substance: OMALIZUMAB
  3. XOLAIR [Suspect]
     Active Substance: OMALIZUMAB
     Indication: Urticaria
  4. XOLAIR [Suspect]
     Active Substance: OMALIZUMAB
  5. XOLAIR [Suspect]
     Active Substance: OMALIZUMAB
     Indication: Mechanical urticaria
  6. XOLAIR [Suspect]
     Active Substance: OMALIZUMAB
  7. METHYL METHACRYLATE [Concomitant]
     Active Substance: METHYL METHACRYLATE

REACTIONS (8)
  - Fatigue [Unknown]
  - Depression [Unknown]
  - Pain in extremity [Unknown]
  - Chest pain [Unknown]
  - Neck pain [Unknown]
  - Arthralgia [Unknown]
  - Myalgia [Unknown]
  - Off label use [Unknown]
